FAERS Safety Report 7207422-4 (Version None)
Quarter: 2011Q1

REPORT INFORMATION
  Report Type: 
  Country: None (occurrence: None)
  Receive Date: 20110103
  Receipt Date: 20101217
  Transmission Date: 20110831
  Serious: Yes (Other)
  Sender: FDA-Public Use
  Company Number: PHHY2010CN86028

PATIENT
  Age: 70 Year
  Sex: Male

DRUGS (2)
  1. DEXAMETHASONE [Suspect]
     Dosage: 20MG, 21 DAY CYCLE
  2. BORTEZOMIB [Suspect]
     Dosage: 1.3 MG/M2,

REACTIONS (4)
  - LACUNAR INFARCTION [None]
  - DYSARTHRIA [None]
  - CEREBROVASCULAR ACCIDENT [None]
  - MUSCULAR WEAKNESS [None]
